FAERS Safety Report 21305777 (Version 1)
Quarter: 2022Q3

REPORT INFORMATION
  Report Type: Other
  Country: US (occurrence: None)
  Receive Date: 20220908
  Receipt Date: 20220908
  Transmission Date: 20221027
  Serious: Yes (Other)
  Sender: FDA-Public Use
  Company Number: US-ROCHE-3170026

PATIENT
  Sex: Female
  Weight: 78.47 kg

DRUGS (11)
  1. OCREVUS [Suspect]
     Active Substance: OCRELIZUMAB
     Indication: Secondary progressive multiple sclerosis
     Dosage: 300MG/10 ML
     Route: 065
  2. ACTHAR [Concomitant]
     Active Substance: CORTICOTROPIN
     Dosage: 80 UNIT/ML
  3. XANAX [Concomitant]
     Active Substance: ALPRAZOLAM
     Route: 048
  4. FIORICET [Concomitant]
     Active Substance: ACETAMINOPHEN\BUTALBITAL\CAFFEINE
     Dosage: 50-300-40 MG
     Route: 048
  5. GABAPENTIN [Concomitant]
     Active Substance: GABAPENTIN
     Route: 048
  6. ADDERALL [Concomitant]
     Active Substance: AMPHETAMINE ASPARTATE\AMPHETAMINE SULFATE\DEXTROAMPHETAMINE SACCHARATE\DEXTROAMPHETAMINE SULFATE
     Route: 048
  7. MELOXICAM [Concomitant]
     Active Substance: MELOXICAM
     Route: 048
  8. MECLIZINE HYDROCHLORIDE [Concomitant]
     Active Substance: MECLIZINE HYDROCHLORIDE
     Route: 048
  9. LYRICA [Concomitant]
     Active Substance: PREGABALIN
  10. CYMBALTA [Concomitant]
     Active Substance: DULOXETINE HYDROCHLORIDE
  11. CYMBALTA [Concomitant]
     Active Substance: DULOXETINE HYDROCHLORIDE

REACTIONS (8)
  - Fall [Unknown]
  - Tinnitus [Unknown]
  - Decreased appetite [Unknown]
  - Dyspepsia [Unknown]
  - Depression [Unknown]
  - Anxiety [Unknown]
  - Multiple sclerosis [Unknown]
  - Demyelination [Unknown]
